FAERS Safety Report 8606218 (Version 5)
Quarter: 2013Q1

REPORT INFORMATION
  Report Type: Spontaneous
  Country: US (occurrence: US)
  Receive Date: 20120608
  Receipt Date: 20130103
  Transmission Date: 20140127
  Serious: Yes (Other)
  Sender: FDA-Public Use
  Company Number: US-ASTRAZENECA-2012SE21515

PATIENT
  Age: 50 Year
  Sex: Female

DRUGS (6)
  1. ATACAND [Suspect]
     Route: 048
  2. NEXIUM [Suspect]
     Route: 048
  3. TOPROL XL [Suspect]
     Route: 048
  4. ATACAND HCT [Suspect]
     Dosage: 32/12.5 MG, UNKNWON FREQUENCY
     Route: 048
  5. ATACAND HCT [Suspect]
     Dosage: 32/12 MG, UNKNWON FREQUENCY
     Route: 048
  6. CRESTOR [Suspect]
     Route: 048

REACTIONS (19)
  - Accident [Unknown]
  - Hypertension [Unknown]
  - Hot flush [Unknown]
  - Local swelling [Unknown]
  - Malaise [Unknown]
  - Stomatitis [Unknown]
  - Dry mouth [Unknown]
  - Tremor [Unknown]
  - Lip disorder [Unknown]
  - Palatal disorder [Unknown]
  - Joint swelling [Unknown]
  - Chest pain [Unknown]
  - Dehydration [Unknown]
  - Renal disorder [Unknown]
  - Lip dry [Unknown]
  - Hypoaesthesia oral [Unknown]
  - Malaise [Unknown]
  - Back disorder [Unknown]
  - Drug dose omission [Unknown]
